FAERS Safety Report 7151187-1 (Version None)
Quarter: 2010Q4

REPORT INFORMATION
  Report Type: 
  Country: None (occurrence: None)
  Receive Date: 20101210
  Receipt Date: 20101203
  Transmission Date: 20110411
  Serious: Yes (Death, Other)
  Sender: FDA-Public Use
  Company Number: HU-GENZYME-CLOF-1001212

PATIENT
  Sex: Male
  Weight: 30 kg

DRUGS (18)
  1. EVOLTRA [Suspect]
     Indication: ACUTE LYMPHOCYTIC LEUKAEMIA
     Dosage: 50 MG/M2, QDX4
     Route: 042
     Dates: start: 20090707, end: 20090710
  2. BUSILVEX [Suspect]
     Indication: ACUTE LYMPHOCYTIC LEUKAEMIA
     Dosage: 16MG/KG, UNK
     Route: 042
     Dates: start: 20090707, end: 20090711
  3. CYCLOPHOSPHAMIDE [Suspect]
     Indication: ACUTE LYMPHOCYTIC LEUKAEMIA
     Dosage: 120MG/KG, UNK
     Route: 042
     Dates: start: 20090711, end: 20090712
  4. ANTI-THYMOCYTE GLOBULIN NOS [Suspect]
     Indication: ACUTE LYMPHOCYTIC LEUKAEMIA
     Dosage: 60 MG/KG, UNK
     Route: 065
     Dates: start: 20090713, end: 20090714
  5. METHOTREXATE [Suspect]
     Indication: ACUTE LYMPHOCYTIC LEUKAEMIA
     Dosage: UNK MG, 2X/W
     Route: 065
     Dates: start: 20090711, end: 20090712
  6. CYCLOSPORINE [Concomitant]
     Indication: PROPHYLAXIS AGAINST GRAFT VERSUS HOST DISEASE
     Dosage: UNK
  7. METHOTREXATE [Concomitant]
     Dosage: 10 MG/M2, QD
     Route: 065
     Dates: start: 20090717
  8. VISELEX [Concomitant]
     Indication: PROPHYLAXIS
     Dosage: 250 MG, QD
     Route: 042
     Dates: start: 20090707
  9. VISELEX [Concomitant]
     Dosage: 150 MG, QD
     Route: 042
     Dates: start: 20090822
  10. VFEND [Concomitant]
     Indication: PROPHYLAXIS
     Dosage: 120 MG, QD
     Route: 042
     Dates: start: 20090806
  11. DICYNONE [Concomitant]
     Indication: PROPHYLAXIS
     Dosage: UNK
     Route: 042
     Dates: start: 20090713
  12. TENEX [Concomitant]
     Indication: HYPERTENSION
     Dosage: 5 MG, QD
     Route: 048
     Dates: start: 20090731, end: 20090822
  13. TENEX [Concomitant]
     Dosage: 6.25 MG, QD
     Route: 048
  14. UNSEFOLK [Concomitant]
     Indication: PROPHYLAXIS
     Dosage: 250 MG, QD
     Route: 048
     Dates: start: 20090707
  15. HEPARIN [Concomitant]
     Indication: PROPHYLAXIS
     Dosage: UNK
     Route: 042
     Dates: start: 20090707, end: 20090821
  16. METHOTREXATE [Concomitant]
     Indication: ACUTE LYMPHOCYTIC LEUKAEMIA
     Dosage: 10 MG/M2, QD
     Route: 065
     Dates: start: 20090719
  17. METHOTREXATE [Concomitant]
     Dosage: 10 MG/M2, QD
     Route: 065
     Dates: start: 20090722
  18. METHOTREXATE [Concomitant]
     Dosage: 10 MG/M2, QD
     Route: 065
     Dates: start: 20090727

REACTIONS (5)
  - ACUTE GRAFT VERSUS HOST DISEASE IN INTESTINE [None]
  - ACUTE GRAFT VERSUS HOST DISEASE IN SKIN [None]
  - CONVULSION [None]
  - ENGRAFTMENT SYNDROME [None]
  - OEDEMA [None]
